FAERS Safety Report 9238881 (Version 1)
Quarter: 2013Q2

REPORT INFORMATION
  Report Type: Spontaneous
  Country: US (occurrence: None)
  Receive Date: 20130417
  Receipt Date: 20130417
  Transmission Date: 20140414
  Serious: No
  Sender: FDA-Public Use
  Company Number: None

PATIENT
  Age: 54 Year
  Sex: Male
  Weight: 96.7 kg

DRUGS (1)
  1. ALFA 2 INTERFERON 2B (INTRON-A) [Suspect]
     Dosage: 940 MILLION IU ON 03/23/2012, LAST DOSE ADMINISTERED.

REACTIONS (3)
  - Disease progression [None]
  - Candida infection [None]
  - Tongue discolouration [None]
